FAERS Safety Report 9964224 (Version 2)
Quarter: 2014Q2

REPORT INFORMATION
  Report Type: Report from Study
  Country: NZ (occurrence: NZ)
  Receive Date: 20140305
  Receipt Date: 20140429
  Transmission Date: 20141212
  Serious: Yes (Death, Other)
  Sender: FDA-Public Use
  Company Number: PHHY2014NZ026841

PATIENT
  Age: 28 Year
  Sex: Female

DRUGS (3)
  1. CLOZARIL [Suspect]
     Dosage: 250 MG DAILY
     Dates: start: 20110203
  2. PAROXETINE [Concomitant]
     Indication: SCHIZOPHRENIA
     Dosage: 30 MG, DAILY
     Route: 048
  3. OLANZAPINE [Concomitant]
     Indication: SCHIZOPHRENIA
     Dosage: 7.5 MG, DAILY
     Route: 048

REACTIONS (6)
  - Breast cancer metastatic [Fatal]
  - Respiratory failure [Fatal]
  - Metastases to central nervous system [Unknown]
  - Convulsion [Unknown]
  - Dyspnoea [Unknown]
  - Confusional state [Unknown]
